FAERS Safety Report 4351426-6 (Version None)
Quarter: 2004Q2

REPORT INFORMATION
  Report Type: 
  Country: None (occurrence: None)
  Receive Date: 20040503
  Receipt Date: 20040308
  Transmission Date: 20050107
  Serious: Yes (Life-Threatening, Hospitalization)
  Sender: FDA-Public Use
  Company Number: PHBS2004JP03141

PATIENT
  Age: 60 Year
  Sex: Male

DRUGS (7)
  1. FASTIC #AJ [Suspect]
     Indication: DIABETES MELLITUS
     Dosage: 270 MG/DAY
     Route: 048
     Dates: start: 20040212, end: 20040218
  2. DILTIAZEM [Concomitant]
     Indication: HYPERTENSION
     Dosage: 200 MG, UNK
     Route: 048
     Dates: end: 20040225
  3. BISOPROLOL [Concomitant]
     Indication: HYPERTENSION
     Dosage: 5 MG, UNK
     Route: 048
     Dates: end: 20040225
  4. METHYLDOPA [Concomitant]
     Indication: HYPERTENSION
     Dosage: 250 MG, UNK
     Dates: end: 20040225
  5. BROTIZOLAM [Concomitant]
     Dosage: .25 MG, UNK
     Route: 048
     Dates: end: 20040225
  6. EBRANTIL [Concomitant]
     Dosage: .25 MG, UNK
     Route: 048
     Dates: start: 20011107, end: 20040225
  7. GOODMIN [Concomitant]
     Dosage: .25 MG, UNK
     Route: 048
     Dates: end: 20040225

REACTIONS (14)
  - ABDOMINAL PAIN UPPER [None]
  - ALANINE AMINOTRANSFERASE INCREASED [None]
  - ASPARTATE AMINOTRANSFERASE INCREASED [None]
  - BLOOD ALKALINE PHOSPHATASE INCREASED [None]
  - BLOOD BILIRUBIN INCREASED [None]
  - CHROMATURIA [None]
  - GAMMA-GLUTAMYLTRANSFERASE INCREASED [None]
  - GENERAL PHYSICAL HEALTH DETERIORATION [None]
  - HEPATIC FAILURE [None]
  - HEPATIC FUNCTION ABNORMAL [None]
  - HEPATITIS FULMINANT [None]
  - LIVER TRANSPLANT [None]
  - MALAISE [None]
  - PROTHROMBIN TIME PROLONGED [None]
